FAERS Safety Report 19876737 (Version 2)
Quarter: 2021Q4

REPORT INFORMATION
  Report Type: Report from Study
  Country: US (occurrence: US)
  Receive Date: 20210923
  Receipt Date: 20211004
  Transmission Date: 20220303
  Serious: Yes (Hospitalization)
  Sender: FDA-Public Use
  Company Number: US-BAYER-2021A215553

PATIENT
  Age: 49 Year
  Sex: Female
  Weight: 71.2 kg

DRUGS (4)
  1. ADEMPAS [Suspect]
     Active Substance: RIOCIGUAT
     Indication: Pulmonary arterial hypertension
     Dosage: 1.0 MG, TID
     Route: 048
     Dates: start: 20210920
  2. WARFARIN [Concomitant]
     Active Substance: WARFARIN
     Dosage: UNK
  3. OPSUMIT [Concomitant]
     Active Substance: MACITENTAN
     Dosage: UNK
  4. ORENITRAM [Concomitant]
     Active Substance: TREPROSTINIL
     Dosage: UNK

REACTIONS (5)
  - Blood pressure decreased [None]
  - Dizziness [Not Recovered/Not Resolved]
  - Gastrointestinal disorder [None]
  - Epistaxis [None]
  - Abdominal discomfort [None]

NARRATIVE: CASE EVENT DATE: 20210901
